FAERS Safety Report 5757091-5 (Version None)
Quarter: 2008Q2

REPORT INFORMATION
  Report Type: 
  Country: None (occurrence: None)
  Receive Date: 20080603
  Receipt Date: 20080527
  Transmission Date: 20081010
  Serious: Yes (Death)
  Sender: FDA-Public Use
  Company Number: B0522982A

PATIENT
  Age: 38 Year
  Sex: Male

DRUGS (3)
  1. AUGMENTIN '125' [Suspect]
     Route: 065
     Dates: start: 20080523
  2. ANTIPYRETIC [Suspect]
     Route: 065
     Dates: start: 20080523
  3. METHADONE HCL [Concomitant]
     Route: 065

REACTIONS (1)
  - DEATH [None]
